FAERS Safety Report 6007260-4 (Version None)
Quarter: 2008Q4

REPORT INFORMATION
  Report Type: 
  Country: None (occurrence: None)
  Receive Date: 20081217
  Receipt Date: 20080204
  Transmission Date: 20090506
  Serious: No
  Sender: FDA-Public Use
  Company Number: US-ASTRAZENECA-2008UW02437

PATIENT
  Age: 76 Year
  Sex: Female

DRUGS (2)
  1. CRESTOR [Suspect]
     Route: 048
  2. TOPROL-XL [Suspect]
     Route: 048
     Dates: start: 20071107

REACTIONS (2)
  - GAIT DISTURBANCE [None]
  - MUSCULAR WEAKNESS [None]
